FAERS Safety Report 10177148 (Version 2)
Quarter: 2014Q2

REPORT INFORMATION
  Report Type: Report from Study
  Country: US (occurrence: US)
  Receive Date: 20140516
  Receipt Date: 20140528
  Transmission Date: 20141212
  Serious: Yes (Other)
  Sender: FDA-Public Use
  Company Number: US-ABBVIE-14P-163-1238115-00

PATIENT
  Age: 33 Year
  Sex: Female

DRUGS (3)
  1. HUMIRA [Suspect]
     Indication: CLOSTRIDIUM DIFFICILE INFECTION
     Dosage: LOADING DOSE ON DAY 1
     Dates: start: 201402
  2. HUMIRA [Suspect]
     Dosage: LOADING DOSE ON DAY 15
  3. HUMIRA [Suspect]

REACTIONS (17)
  - Abortion spontaneous [Unknown]
  - Fatigue [Not Recovered/Not Resolved]
  - Nausea [Unknown]
  - Vomiting [Unknown]
  - Somnolence [Unknown]
  - Productive cough [Unknown]
  - Chest pain [Unknown]
  - Injection site urticaria [Unknown]
  - Injection site erythema [Unknown]
  - Injection site pain [Unknown]
  - Injection site pruritus [Unknown]
  - Pyrexia [Not Recovered/Not Resolved]
  - Confusional state [Unknown]
  - Respiratory tract infection [Not Recovered/Not Resolved]
  - Frequent bowel movements [Not Recovered/Not Resolved]
  - Therapeutic response changed [Not Recovered/Not Resolved]
  - Off label use [Not Recovered/Not Resolved]
